FAERS Safety Report 8180581-5 (Version None)
Quarter: 2012Q1

REPORT INFORMATION
  Report Type: 
  Country: None (occurrence: None)
  Receive Date: 20120302
  Receipt Date: 20120223
  Transmission Date: 20120608
  Serious: Yes (Hospitalization)
  Sender: FDA-Public Use
  Company Number: FR-ROCHE-1043102

PATIENT
  Sex: Female

DRUGS (2)
  1. ROCEPHIN [Suspect]
     Indication: BRONCHOPNEUMOPATHY
     Dates: start: 20111103, end: 20111124
  2. COUMADIN [Suspect]
     Indication: BRONCHOPNEUMOPATHY
     Route: 048
     Dates: start: 20111104, end: 20111203

REACTIONS (2)
  - HAEMATOMA [None]
  - ACCIDENTAL OVERDOSE [None]
